FAERS Safety Report 5162627-1 (Version None)
Quarter: 2006Q4

REPORT INFORMATION
  Report Type: 
  Country: None (occurrence: None)
  Receive Date: 20061201
  Receipt Date: 20061121
  Transmission Date: 20070319
  Serious: Yes (Other)
  Sender: FDA-Public Use
  Company Number: GR-AMGEN-UK201234

PATIENT
  Age: 67 Year
  Sex: Female
  Weight: 58 kg

DRUGS (7)
  1. MIMPARA [Suspect]
     Indication: HYPERPARATHYROIDISM SECONDARY
     Route: 048
     Dates: start: 20060918, end: 20060930
  2. NEORECORMON [Concomitant]
     Route: 042
  3. VENOFER [Concomitant]
     Route: 042
  4. FILICINE [Concomitant]
     Route: 048
  5. CERNEVIT-12 [Concomitant]
     Route: 042
  6. RENAGEL [Concomitant]
     Route: 048
  7. ZEMPLAR [Concomitant]
     Route: 042

REACTIONS (2)
  - HAEMATOCHEZIA [None]
  - HAEMORRHOIDAL HAEMORRHAGE [None]
